FAERS Safety Report 11582840 (Version 4)
Quarter: 2015Q4

REPORT INFORMATION
  Report Type: Spontaneous
  Country: JP (occurrence: JP)
  Receive Date: 20151001
  Receipt Date: 20151124
  Transmission Date: 20160304
  Serious: Yes (Life-Threatening, Hospitalization, Other)
  Sender: FDA-Public Use
  Company Number: JP-ELI_LILLY_AND_COMPANY-JP201509009601

PATIENT
  Age: 49 Year
  Sex: Male
  Weight: 52.7 kg

DRUGS (8)
  1. DAIKENCHUTO [Concomitant]
     Active Substance: HERBALS
     Dosage: UNK
  2. PYDOXAL [Concomitant]
     Active Substance: PYRIDOXAL
     Dosage: UNK
  3. PACLITAXEL. [Concomitant]
     Active Substance: PACLITAXEL
     Indication: GASTRIC CANCER RECURRENT
     Dosage: 130 MG, OTHER
     Route: 042
     Dates: start: 20150715, end: 20150901
  4. JUZENTAIHOTO                       /07985601/ [Concomitant]
     Dosage: UNK
  5. PROMAC                             /00024401/ [Concomitant]
     Active Substance: NITROFURANTOIN
     Dosage: UNK
  6. BETAMETHASONE. [Concomitant]
     Active Substance: BETAMETHASONE
     Dosage: UNK
  7. CYRAMZA [Suspect]
     Active Substance: RAMUCIRUMAB
     Indication: GASTRIC CANCER RECURRENT
     Dosage: 460 MG, OTHER
     Route: 042
     Dates: start: 20150728, end: 20150901
  8. BIOFERMIN                          /01617201/ [Concomitant]
     Active Substance: BACILLUS SUBTILIS\LACTOBACILLUS ACIDOPHILUS\STREPTOCOCCUS FAECAIS
     Dosage: UNK

REACTIONS (5)
  - Red blood cell abnormality [Unknown]
  - Jaundice [Not Recovered/Not Resolved]
  - Thrombosis [Unknown]
  - Altered state of consciousness [Not Recovered/Not Resolved]
  - Anaemia [Unknown]

NARRATIVE: CASE EVENT DATE: 20150731
